FAERS Safety Report 5281062-9 (Version None)
Quarter: 2007Q1

REPORT INFORMATION
  Report Type: 
  Country: None (occurrence: None)
  Receive Date: 20070323
  Receipt Date: 20070315
  Transmission Date: 20070707
  Serious: Yes (Life-Threatening, Hospitalization)
  Sender: FDA-Public Use
  Company Number: 430001M07FIN

PATIENT
  Age: 5 Year
  Sex: Female

DRUGS (15)
  1. MITOXANTRONE [Suspect]
     Indication: ACUTE MYELOID LEUKAEMIA
     Dosage: 7 MG, 1 IN 1 DAYS, INTRAVENOUS (NOT OTHERWISE SPECIFIED)
     Route: 042
     Dates: start: 20070201, end: 20070203
  2. CETIRIZINE HYDROCHLORIDE [Concomitant]
  3. FLUTICASONE PROPIONATE [Concomitant]
  4. DIFLUCAN [Concomitant]
  5. OMEPRAZOLE [Concomitant]
  6. PERFALGAN (PARACETAMOL) [Concomitant]
  7. LAXOBERON (SODIUM PICOSULFATE) [Concomitant]
  8. ROCEPHALIN (CEFTRIAXONE SODIUM) [Concomitant]
  9. LEVOLAC (LACTULOSE) [Concomitant]
  10. NAVOBAN (TROPISETRON HYDROCHLORIDE) [Concomitant]
  11. PRIMPERAN (METOCLOPRAMIDE /00041901/) [Concomitant]
  12. CYTARABINE [Concomitant]
  13. CEFTAZIDIME [Concomitant]
  14. VANCOMYCIN /00314401/ [Concomitant]
  15. METHOTREXATE /00113801/ [Concomitant]

REACTIONS (2)
  - BLOOD PRESSURE DECREASED [None]
  - INTERSTITIAL LUNG DISEASE [None]
